FAERS Safety Report 5022831-X (Version None)
Quarter: 2006Q2

REPORT INFORMATION
  Report Type: 
  Country: None (occurrence: None)
  Receive Date: 20060426
  Receipt Date: 20060301
  Transmission Date: 20061013
  Serious: Yes (Other)
  Sender: FDA-Public Use
  Company Number: 2006031572

PATIENT
  Sex: Female

DRUGS (6)
  1. LYRICA [Suspect]
     Indication: MULTIPLE SCLEROSIS
     Dates: end: 20060226
  2. ZOLOFT [Concomitant]
  3. ALL OTHER THERAPEUTIC PRODUCTS [Concomitant]
  4. DURAGESIC-100 [Concomitant]
  5. LIPITOR [Concomitant]
  6. METHYLPHENIDATE HCL [Concomitant]

REACTIONS (3)
  - MALAISE [None]
  - OVERDOSE [None]
  - THERAPEUTIC PROCEDURE [None]
